FAERS Safety Report 7012654-4 (Version None)
Quarter: 2010Q3

REPORT INFORMATION
  Report Type: 
  Country: None (occurrence: None)
  Receive Date: 20100924
  Receipt Date: 20100913
  Transmission Date: 20110219
  Serious: Yes (Hospitalization, Other)
  Sender: FDA-Public Use
  Company Number: SE-SANOFI-AVENTIS-2010SA055586

PATIENT
  Age: 63 Year
  Sex: Male
  Weight: 118 kg

DRUGS (8)
  1. LASIX [Suspect]
     Route: 048
     Dates: start: 20061101
  2. BLINDED THERAPY [Suspect]
     Route: 065
     Dates: start: 20061207, end: 20071026
  3. BISOPROLOL FUMARATE [Concomitant]
     Dates: start: 20051001
  4. VALSARTAN [Concomitant]
     Dates: start: 20051101, end: 20071026
  5. ACETYLSALICYLIC ACID [Concomitant]
     Dates: start: 19950501
  6. SIMVASTATIN [Concomitant]
     Dates: start: 20010901
  7. RAMIPRIL [Concomitant]
     Dates: start: 20061001
  8. TRIOBE [Concomitant]
     Dates: start: 20031201

REACTIONS (7)
  - BLOOD POTASSIUM INCREASED [None]
  - CARDIAC FAILURE CHRONIC [None]
  - GOUT [None]
  - HYPOTENSION [None]
  - OEDEMA PERIPHERAL [None]
  - PAIN IN EXTREMITY [None]
  - RENAL FAILURE [None]
